FAERS Safety Report 24139142 (Version 7)
Quarter: 2025Q2

REPORT INFORMATION
  Report Type: Spontaneous
  Country: US (occurrence: US)
  Receive Date: 20240726
  Receipt Date: 20250603
  Transmission Date: 20250716
  Serious: Yes (Other)
  Sender: CSL BEHRING
  Company Number: US-BEH-2024175860

PATIENT
  Age: 56 Year
  Sex: Female

DRUGS (69)
  1. HIZENTRA [Suspect]
     Active Substance: HUMAN IMMUNOGLOBULIN G
     Indication: Immunodeficiency common variable
     Dosage: 30 G, QOW
     Route: 058
     Dates: start: 20211210
  2. HIZENTRA [Suspect]
     Active Substance: HUMAN IMMUNOGLOBULIN G
     Indication: Immunodeficiency
     Dosage: 4 G/20ML, TRANSFER 150 ML INTO THREE 50 ML SYRINGES. INFUSE 150 ML (30 GM) SUBCUTANEOUSLY EVERY 2 WE
     Route: 058
     Dates: start: 20211210
  3. HIZENTRA [Suspect]
     Active Substance: HUMAN IMMUNOGLOBULIN G
     Dosage: 2GM/10ML, TRANSFER 150 ML INTO THREE 50 ML SYRINGES. INFUSE 150 ML (30 GM) SUBCUTANEOUSLY EVERY 2 WE
     Route: 058
     Dates: start: 20211210
  4. HIZENTRA [Suspect]
     Active Substance: HUMAN IMMUNOGLOBULIN G
     Dosage: 4 G/20ML, TRANSFER 150 ML INTO THREE 50 ML SYRINGES. INFUSE 150 ML (30 GM) SUBCUTANEOUSLY EVERY 2 WE
     Route: 058
     Dates: start: 20211210
  5. HIZENTRA [Suspect]
     Active Substance: HUMAN IMMUNOGLOBULIN G
     Dosage: 2GM/10ML, TRANSFER 150 ML INTO THREE 50 ML SYRINGES. INFUSE 150 ML (30 GM) SUBCUTANEOUSLY EVERY 2 WE
     Route: 058
     Dates: start: 20211210
  6. HIZENTRA [Suspect]
     Active Substance: HUMAN IMMUNOGLOBULIN G
     Dosage: 10GM/50ML, TRANSFER 150 ML INTO THREE 50 ML SYRINGES. INFUSE 150 ML (30 GM) SUBCUTANEOUSLY EVERY 2 W
     Route: 058
     Dates: start: 20250308
  7. HIZENTRA [Suspect]
     Active Substance: HUMAN IMMUNOGLOBULIN G
     Dosage: 34 G, QOW (10 GM/50ML: INFUSE 34 GRAMS SUBCUTANEOUSLY EVERY 2 WEEKS; 4 GM/20ML: INFUSE 34 GRAMS SUBC
     Route: 058
     Dates: start: 20250308
  8. DULOXETINE [Suspect]
     Active Substance: DULOXETINE
     Route: 065
  9. NURTEC ODT [Suspect]
     Active Substance: RIMEGEPANT SULFATE
     Route: 065
  10. AMOXICILLIN\CLAVULANATE POTASSIUM [Concomitant]
     Active Substance: AMOXICILLIN\CLAVULANATE POTASSIUM
  11. AZELASTINE [Concomitant]
     Active Substance: AZELASTINE
  12. AZITHROMYCIN [Concomitant]
     Active Substance: AZITHROMYCIN
  13. BOTOX [Concomitant]
     Active Substance: ONABOTULINUMTOXINA
  14. CEFUROXIME [Concomitant]
     Active Substance: CEFUROXIME
  15. Ciprofloxacin 0,3% and dexamethasone 0,1% [Concomitant]
  16. CIPROFLOXACIN [Concomitant]
     Active Substance: CIPROFLOXACIN
  17. CLARITHROMYCIN [Concomitant]
     Active Substance: CLARITHROMYCIN
  18. CLOBETASOL [Concomitant]
     Active Substance: CLOBETASOL
  19. CLONAZEPAM [Concomitant]
     Active Substance: CLONAZEPAM
  20. CYCLOBENZAPRINE [Concomitant]
     Active Substance: CYCLOBENZAPRINE
  21. CYCLOBENZAPRINE [Concomitant]
     Active Substance: CYCLOBENZAPRINE
  22. DESONIDE [Concomitant]
     Active Substance: DESONIDE
  23. DEXAMETHASONE [Concomitant]
     Active Substance: DEXAMETHASONE
  24. DIAZEPAM [Concomitant]
     Active Substance: DIAZEPAM
  25. EPINEPHRINE [Concomitant]
     Active Substance: EPINEPHRINE
  26. FLUCONAZOLE [Concomitant]
     Active Substance: FLUCONAZOLE
  27. FLUOCINONIDE [Concomitant]
     Active Substance: FLUOCINONIDE
  28. FUROSEMIDE [Concomitant]
     Active Substance: FUROSEMIDE
  29. A-HYDROCORT [Concomitant]
     Active Substance: HYDROCORTISONE SODIUM SUCCINATE
  30. HYQVIA [Concomitant]
     Active Substance: HUMAN IMMUNOGLOBULIN G\HYALURONIDASE (HUMAN RECOMBINANT)
  31. LEVOTHYROXINE [Concomitant]
     Active Substance: LEVOTHYROXINE
  32. LIDOCAINE\PRILOCAINE [Concomitant]
     Active Substance: LIDOCAINE\PRILOCAINE
  33. LOSARTAN [Concomitant]
     Active Substance: LOSARTAN
  34. LOSARTAN [Concomitant]
     Active Substance: LOSARTAN
  35. LOTEMAX [Concomitant]
     Active Substance: LOTEPREDNOL ETABONATE
  36. METHYLPREDNISOLONE [Concomitant]
     Active Substance: METHYLPREDNISOLONE
  37. METOPROLOL SUCCINATE [Concomitant]
     Active Substance: METOPROLOL SUCCINATE
  38. MINOXIDIL [Concomitant]
     Active Substance: MINOXIDIL
  39. NORTRIPTYLINE [Concomitant]
     Active Substance: NORTRIPTYLINE
  40. NORTRIPTYLINE [Concomitant]
     Active Substance: NORTRIPTYLINE
  41. NORTRIPTYLINE [Concomitant]
     Active Substance: NORTRIPTYLINE
  42. NP THYROID [Concomitant]
     Active Substance: LEVOTHYROXINE\LIOTHYRONINE
  43. NP THYROID [Concomitant]
     Active Substance: LEVOTHYROXINE\LIOTHYRONINE
  44. NP THYROID [Concomitant]
     Active Substance: LEVOTHYROXINE\LIOTHYRONINE
  45. OFLOXACIN [Concomitant]
     Active Substance: OFLOXACIN
  46. ONDANSETRON [Concomitant]
     Active Substance: ONDANSETRON
  47. PANTOPRAZOLE [Concomitant]
     Active Substance: PANTOPRAZOLE
  48. Penicilin v kali [Concomitant]
  49. PIMECROLIMUS [Concomitant]
     Active Substance: PIMECROLIMUS
  50. POTASSIUM CHLORIDE [Concomitant]
     Active Substance: POTASSIUM CHLORIDE
  51. PROMETHAZINE [Concomitant]
     Active Substance: PROMETHAZINE HYDROCHLORIDE
  52. PROMETHAZINE [Concomitant]
     Active Substance: PROMETHAZINE HYDROCHLORIDE
  53. RESTASIS [Concomitant]
     Active Substance: CYCLOSPORINE
  54. RIZATRIPTAN [Concomitant]
     Active Substance: RIZATRIPTAN
  55. TACROLIMUS [Concomitant]
     Active Substance: TACROLIMUS
  56. TRETINOIN [Concomitant]
     Active Substance: TRETINOIN
  57. TRETINOIN [Concomitant]
     Active Substance: TRETINOIN
  58. TRIAMTERENE AND HYDROCHLOROTHIAZIDE [Concomitant]
     Active Substance: HYDROCHLOROTHIAZIDE\TRIAMTERENE
  59. TRIAMTERENE AND HYDROCHLOROTHIAZIDE [Concomitant]
     Active Substance: HYDROCHLOROTHIAZIDE\TRIAMTERENE
  60. VENLAFAXINE [Concomitant]
     Active Substance: VENLAFAXINE HYDROCHLORIDE
  61. VERAPAMIL [Concomitant]
     Active Substance: VERAPAMIL HYDROCHLORIDE
  62. VERAPAMIL [Concomitant]
     Active Substance: VERAPAMIL HYDROCHLORIDE
  63. VITAMIN D [Concomitant]
     Active Substance: VITAMIN D NOS
  64. XELJANZ [Concomitant]
     Active Substance: TOFACITINIB CITRATE
  65. XELJANZ XR [Concomitant]
     Active Substance: TOFACITINIB CITRATE
  66. DAVESOMERAN\ELASOMERAN [Concomitant]
     Active Substance: DAVESOMERAN\ELASOMERAN
  67. FLUCELVAX QUADRIVALENT 2017/2018 (INFLUENZA A VIRUS A/DARWIN/11/2021 ( [Concomitant]
     Active Substance: INFLUENZA A VIRUS A/DARWIN/11/2021 (H3N2) ANTIGEN (MDCK CELL DERIVED, PROPIOLACTONE INACTIVATED)\INF
  68. AMPICILLIN [Concomitant]
     Active Substance: AMPICILLIN
     Indication: Sinusitis
  69. ORENCIA [Suspect]
     Active Substance: ABATACEPT

REACTIONS (15)
  - Drug ineffective [Unknown]
  - Drug ineffective [Unknown]
  - Drug ineffective [Not Recovered/Not Resolved]
  - Discomfort [Unknown]
  - Tinnitus [Not Recovered/Not Resolved]
  - Discomfort [Unknown]
  - Infection [Unknown]
  - Sinusitis [Unknown]
  - Discomfort [Recovering/Resolving]
  - Rash [Recovering/Resolving]
  - Skin irritation [Unknown]
  - Therapy change [Unknown]
  - Rash [Unknown]
  - Sinusitis [Unknown]
  - Rash [Unknown]

NARRATIVE: CASE EVENT DATE: 20241101
